FAERS Safety Report 10081058 (Version 1)
Quarter: 2014Q2

REPORT INFORMATION
  Report Type: Spontaneous
  Country: US (occurrence: None)
  Receive Date: 20140414
  Receipt Date: 20140414
  Transmission Date: 20141212
  Serious: Yes (Other)
  Sender: FDA-Public Use
  Company Number: 2014P1002869

PATIENT
  Age: 33 Year
  Sex: Female

DRUGS (1)
  1. MYORISAN [Suspect]
     Dates: start: 20131115

REACTIONS (1)
  - Mood altered [None]
